FAERS Safety Report 12526855 (Version 3)
Quarter: 2016Q3

REPORT INFORMATION
  Report Type: Report from Study
  Country: US (occurrence: US)
  Receive Date: 20160705
  Receipt Date: 20160912
  Transmission Date: 20161109
  Serious: Yes (Hospitalization, Other)
  Sender: FDA-Public Use
  Company Number: US-GILEAD-2016-0221948

PATIENT
  Age: 79 Year
  Sex: Male

DRUGS (2)
  1. AMBRISENTAN [Suspect]
     Active Substance: AMBRISENTAN
     Indication: PRODUCT USED FOR UNKNOWN INDICATION
     Dosage: 10 MG, QD
     Route: 065
     Dates: start: 20110203
  2. TYVASO [Concomitant]
     Active Substance: TREPROSTINIL

REACTIONS (11)
  - Arteriovenous fistula site haemorrhage [Unknown]
  - Peripheral swelling [Unknown]
  - Syncope [Unknown]
  - Pulmonary hypertension [Unknown]
  - Oxygen saturation decreased [Not Recovered/Not Resolved]
  - Dyspnoea [Not Recovered/Not Resolved]
  - Head injury [Unknown]
  - Arteriovenous fistula operation [Unknown]
  - Activities of daily living impaired [Unknown]
  - Dizziness [Unknown]
  - Surgery [Unknown]

NARRATIVE: CASE EVENT DATE: 2016
